FAERS Safety Report 8555529-1 (Version None)
Quarter: 2012Q3

REPORT INFORMATION
  Report Type: 
  Country: None (occurrence: None)
  Receive Date: 20120731
  Receipt Date: 20111025
  Transmission Date: 20120928
  Serious: No
  Sender: FDA-Public Use
  Company Number: US-ASTRAZENECA-2010SE57912

PATIENT
  Age: 64 Year
  Sex: Female
  Weight: 83.5 kg

DRUGS (13)
  1. SEROQUEL [Suspect]
     Indication: DEPRESSION
     Route: 048
     Dates: start: 20090401
  2. COMPAZINE [Concomitant]
     Indication: ABDOMINAL DISCOMFORT
  3. RANITIDINE [Concomitant]
  4. TRAMADOL HYDROCHLORIDE [Concomitant]
     Indication: MIGRAINE
  5. SEROQUEL [Suspect]
     Route: 048
  6. VICODIN [Concomitant]
  7. AMLODIPINE [Concomitant]
     Indication: HYPERTENSION
  8. NAPROXEN [Concomitant]
     Indication: ARTHRITIS
  9. DARVOCET [Concomitant]
  10. FLUOXETINE HCL [Concomitant]
  11. CLONAZEPAM [Concomitant]
  12. PROCHLORPERAZINE [Concomitant]
  13. TIZANIDINE HYDROCHLORIDE [Concomitant]
     Indication: MUSCLE RELAXANT THERAPY

REACTIONS (10)
  - DRUG DOSE OMISSION [None]
  - NASOPHARYNGITIS [None]
  - NAUSEA [None]
  - DIARRHOEA [None]
  - BRONCHITIS [None]
  - SOMNOLENCE [None]
  - MIDDLE INSOMNIA [None]
  - VOMITING [None]
  - ABDOMINAL PAIN UPPER [None]
  - ASTHMA [None]
